FAERS Safety Report 7093232-8 (Version None)
Quarter: 2010Q4

REPORT INFORMATION
  Report Type: 
  Country: None (occurrence: None)
  Receive Date: 20101110
  Receipt Date: 20101102
  Transmission Date: 20110411
  Serious: Yes (Other)
  Sender: FDA-Public Use
  Company Number: ES-SANOFI-AVENTIS-2010SA067137

PATIENT
  Age: 27 Year
  Sex: Female

DRUGS (3)
  1. RIFAMPICIN [Suspect]
     Indication: TUBERCULIN TEST POSITIVE
  2. ISONIAZID [Suspect]
     Indication: TUBERCULIN TEST POSITIVE
  3. PYRIDOXINE HCL [Concomitant]
     Indication: TUBERCULIN TEST POSITIVE

REACTIONS (10)
  - ACUTE PHASE REACTION [None]
  - DEPRESSION [None]
  - ENCEPHALOPATHY [None]
  - HEPATITIS [None]
  - LYMPHADENOPATHY [None]
  - LYMPHOCYTOSIS [None]
  - MONONUCLEOSIS SYNDROME [None]
  - PYREXIA [None]
  - SUICIDAL IDEATION [None]
  - THROMBOCYTOPENIA [None]
